FAERS Safety Report 9796821 (Version 1)
Quarter: 2014Q1

REPORT INFORMATION
  Report Type: Spontaneous
  Country: US (occurrence: US)
  Receive Date: 20140103
  Receipt Date: 20140103
  Transmission Date: 20141002
  Serious: Yes (Death)
  Sender: FDA-Public Use
  Company Number: US-PURDUE-USA-2013-0109826

PATIENT
  Age: 46 Year
  Sex: Male

DRUGS (3)
  1. TRAMADOL (SIMILAR TO NDA 21-745) [Suspect]
     Indication: PAIN
  2. HYDROCODONE [Suspect]
     Indication: PAIN
  3. METHADONE [Suspect]
     Indication: PAIN

REACTIONS (4)
  - Accidental overdose [Fatal]
  - Snoring [Unknown]
  - Somnolence [Unknown]
  - Feeling abnormal [Unknown]
